FAERS Safety Report 20032067 (Version 1)
Quarter: 2021Q4

REPORT INFORMATION
  Report Type: Spontaneous
  Country: US (occurrence: US)
  Receive Date: 20211103
  Receipt Date: 20211103
  Transmission Date: 20220303
  Serious: No
  Sender: FDA-Public Use
  Company Number: US-ALLERGAN-2127778US

PATIENT
  Sex: Male

DRUGS (2)
  1. VRAYLAR [Suspect]
     Active Substance: CARIPRAZINE
     Indication: Anxiety
     Dosage: 3 MG, QD
  2. VRAYLAR [Suspect]
     Active Substance: CARIPRAZINE
     Indication: Depression
     Dosage: 1.5 MG, QD
     Dates: start: 202106

REACTIONS (2)
  - Anxiety [Recovering/Resolving]
  - Product use in unapproved indication [Unknown]
